FAERS Safety Report 5726636-3 (Version None)
Quarter: 2008Q2

REPORT INFORMATION
  Report Type: 
  Country: None (occurrence: None)
  Receive Date: 20080502
  Receipt Date: 20080424
  Transmission Date: 20081010
  Serious: Yes (Hospitalization)
  Sender: FDA-Public Use
  Company Number: JP-ABBOTT-08P-087-0449166-00

PATIENT
  Sex: Male

DRUGS (13)
  1. KALETRA [Suspect]
     Indication: HIV INFECTION
     Route: 048
     Dates: start: 20061225
  2. ZIDOVUDINE [Concomitant]
     Indication: HIV INFECTION
     Route: 048
     Dates: end: 20061109
  3. LAMIVUDINE [Concomitant]
     Indication: HIV INFECTION
     Route: 048
     Dates: end: 20060806
  4. ABACAVIR [Concomitant]
     Indication: HIV INFECTION
     Route: 048
  5. EMTRICITABINE W/TENOFOVIR [Concomitant]
     Indication: HIV INFECTION
     Route: 048
     Dates: start: 20060807
  6. BACTRIM [Concomitant]
     Indication: ANTIFUNGAL PROPHYLAXIS
     Route: 048
  7. SPIRONOLACTONE [Concomitant]
     Indication: HEPATITIS B
     Route: 048
  8. SPIRONOLACTONE [Concomitant]
     Indication: HEPATIC CIRRHOSIS
  9. TEPRENONE [Concomitant]
     Indication: HEPATITIS B
     Route: 048
  10. TEPRENONE [Concomitant]
     Indication: HEPATIC CIRRHOSIS
  11. FUROSEMIDE [Concomitant]
     Indication: HEPATITIS B
     Dosage: 20MG TO 80MG DAILY
     Route: 048
  12. FUROSEMIDE [Concomitant]
     Indication: HEPATIC CIRRHOSIS
  13. OMEPRAZOLE [Concomitant]
     Indication: GASTROOESOPHAGEAL REFLUX DISEASE
     Route: 048
     Dates: start: 20061024

REACTIONS (1)
  - HEPATIC ENCEPHALOPATHY [None]
